FAERS Safety Report 19708454 (Version 2)
Quarter: 2021Q3

REPORT INFORMATION
  Report Type: Spontaneous
  Country: US (occurrence: US)
  Receive Date: 20210817
  Receipt Date: 20210819
  Transmission Date: 20211014
  Serious: Yes (Other)
  Sender: FDA-Public Use
  Company Number: US-PFIZER INC-202101011684

PATIENT
  Age: 5 Year
  Sex: Male
  Weight: 19.1 kg

DRUGS (1)
  1. CEFEPIME HCL [Suspect]
     Active Substance: CEFEPIME HYDROCHLORIDE
     Dosage: 50 MG/KG
     Dates: start: 2021, end: 20210702

REACTIONS (6)
  - Pain [Recovering/Resolving]
  - Relapsing fever [Recovering/Resolving]
  - Oedema peripheral [Unknown]
  - Infective myositis [Unknown]
  - Peripheral swelling [Unknown]
  - Cellulitis [Unknown]

NARRATIVE: CASE EVENT DATE: 2021
